FAERS Safety Report 11867108 (Version 1)
Quarter: 2015Q4

REPORT INFORMATION
  Report Type: Report from Study
  Country: US (occurrence: US)
  Receive Date: 20151224
  Receipt Date: 20151224
  Transmission Date: 20160305
  Serious: Yes (Hospitalization)
  Sender: FDA-Public Use
  Company Number: US-ABBVIE-15K-163-1523754-00

PATIENT
  Age: 54 Year
  Sex: Male
  Weight: 86.26 kg

DRUGS (4)
  1. ASPIRIN. [Suspect]
     Active Substance: ASPIRIN
     Indication: MYOCARDIAL INFARCTION
     Route: 065
     Dates: start: 2015
  2. TICAGRELOR [Suspect]
     Active Substance: TICAGRELOR
     Indication: ANTICOAGULANT THERAPY
     Route: 065
     Dates: start: 2015
  3. PRILOSEC [Concomitant]
     Active Substance: OMEPRAZOLE MAGNESIUM
     Indication: GASTROOESOPHAGEAL REFLUX DISEASE
  4. HUMIRA [Suspect]
     Active Substance: ADALIMUMAB
     Indication: PSORIASIS
     Route: 058
     Dates: start: 2013

REACTIONS (5)
  - Arterial occlusive disease [Recovered/Resolved]
  - Pruritus [Not Recovered/Not Resolved]
  - Dyspepsia [Recovered/Resolved]
  - Myocardial infarction [Recovered/Resolved]
  - Injection site bruising [Not Recovered/Not Resolved]

NARRATIVE: CASE EVENT DATE: 201510
